FAERS Safety Report 18188353 (Version 2)
Quarter: 2020Q4

REPORT INFORMATION
  Report Type: Spontaneous
  Country: DE (occurrence: DE)
  Receive Date: 20200824
  Receipt Date: 20201222
  Transmission Date: 20210113
  Serious: Yes (Hospitalization)
  Sender: FDA-Public Use
  Company Number: DE-PFIZER INC-2020321993

PATIENT
  Age: 66 Year
  Sex: Male
  Weight: 140 kg

DRUGS (8)
  1. HYDROCHLOROTHIAZID [Interacting]
     Active Substance: HYDROCHLOROTHIAZIDE
     Dosage: 12.5 MG, 1X/DAY
     Route: 048
  2. TAMSULOSIN [Interacting]
     Active Substance: TAMSULOSIN
     Dosage: 0.4 MG, 1X/DAY
     Route: 048
  3. BISOPROLOL [Interacting]
     Active Substance: BISOPROLOL
     Dosage: 5 MG, 1X/DAY
     Route: 048
  4. DULOXETINE. [Interacting]
     Active Substance: DULOXETINE
     Dosage: 30 MG, 2X/DAY
     Route: 048
  5. FINASTERIDE. [Interacting]
     Active Substance: FINASTERIDE
     Dosage: 5 MG, 1X/DAY
     Route: 048
  6. VALSARTAN. [Interacting]
     Active Substance: VALSARTAN
     Dosage: 160 MG, 1X/DAY
     Route: 048
  7. AMLODIPINE BESILATE [Suspect]
     Active Substance: AMLODIPINE BESYLATE
     Dosage: 10 MG, 1X/DAY (1-0-0-0)
     Route: 048
  8. MOXONIDIN [Interacting]
     Active Substance: MOXONIDINE
     Dosage: 0.3 MG, 1X/DAY
     Route: 048

REACTIONS (8)
  - Vertigo [Recovering/Resolving]
  - General physical health deterioration [Recovering/Resolving]
  - Dizziness [Recovering/Resolving]
  - Labelled drug-drug interaction medication error [Unknown]
  - Hypotension [Recovering/Resolving]
  - Gait disturbance [Recovering/Resolving]
  - Renal impairment [Recovering/Resolving]
  - Feeling hot [Recovering/Resolving]
